FAERS Safety Report 4743946-7 (Version None)
Quarter: 2005Q3

REPORT INFORMATION
  Report Type: 
  Country: None (occurrence: None)
  Receive Date: 20050809
  Receipt Date: 20050804
  Transmission Date: 20060218
  Serious: Yes (Hospitalization)
  Sender: FDA-Public Use
  Company Number: 2004047994

PATIENT
  Age: 45 Year
  Sex: Female

DRUGS (6)
  1. ATORVASTATIN CALCIUM [Suspect]
     Indication: HYPERCHOLESTEROLAEMIA
     Dosage: DAILY, ORAL
     Route: 048
  2. CHOLESTYRAMINE [Concomitant]
  3. POTASSIUM CHLORIDE [Concomitant]
  4. FLUINDIONE (FLUINDIONE) [Concomitant]
  5. FUROSEMIDE [Concomitant]
  6. ACETAMINOPHEN [Concomitant]

REACTIONS (2)
  - BLOOD CREATINE PHOSPHOKINASE INCREASED [None]
  - HAEMATOMA [None]
